FAERS Safety Report 7965381-0 (Version None)
Quarter: 2011Q4

REPORT INFORMATION
  Report Type: 
  Country: None (occurrence: None)
  Receive Date: 20111205
  Receipt Date: 20111124
  Transmission Date: 20120403
  Serious: Yes (Hospitalization)
  Sender: FDA-Public Use
  Company Number: 2011MA017010

PATIENT
  Age: 61 Year
  Sex: Female

DRUGS (7)
  1. ACETYLCYSTEINE [Concomitant]
  2. FEVERALL [Suspect]
     Dosage: 5 G; PO
     Route: 048
     Dates: end: 20111007
  3. ANTABUSE [Suspect]
     Indication: ALCOHOLISM
     Dosage: 200 MG; PO
     Route: 048
     Dates: start: 20110806, end: 20111007
  4. BRICANYL [Concomitant]
  5. SPIRIVA [Concomitant]
  6. DICLOFENAC SODIUM [Suspect]
     Dosage: 50 MG; PRN; PO
     Route: 048
  7. ESCITALOPRAM [Concomitant]

REACTIONS (6)
  - ASPARTATE AMINOTRANSFERASE INCREASED [None]
  - HEPATOMEGALY [None]
  - BLOOD ALKALINE PHOSPHATASE INCREASED [None]
  - HYPERBILIRUBINAEMIA [None]
  - JAUNDICE [None]
  - ALANINE AMINOTRANSFERASE INCREASED [None]
